FAERS Safety Report 5193890-9 (Version None)
Quarter: 2006Q4

REPORT INFORMATION
  Report Type: 
  Country: None (occurrence: None)
  Receive Date: 20061221
  Receipt Date: 20061211
  Transmission Date: 20070319
  Serious: Yes (Hospitalization)
  Sender: FDA-Public Use
  Company Number: 213707

PATIENT
  Age: 62 Year
  Sex: Female
  Weight: 50 kg

DRUGS (6)
  1. MABTHERA ( RITUXIMAB) CONC FOR SOLUTION FOR INFUSION [Suspect]
     Indication: CHRONIC LYMPHOCYTIC LEUKAEMIA
     Dosage: 562.5 MG, INTRAVENOUS
     Route: 042
     Dates: start: 20050228, end: 20050301
  2. CYCLOPHOSPHAMIDE [Suspect]
     Indication: CHRONIC LYMPHOCYTIC LEUKAEMIA
     Dosage: 375 MG, INTRAVENOUS
     Route: 042
     Dates: start: 20050301, end: 20050303
  3. FLUDARABINE PHOSPHATE [Suspect]
     Indication: CHRONIC LYMPHOCYTIC LEUKAEMIA
     Dosage: 37.5 MG, INTRAVENOUS
     Route: 042
     Dates: start: 20050301, end: 20050303
  4. PREDNISOLONE [Concomitant]
  5. ACETAMINOPHEN [Concomitant]
  6. DEXAMETHASONE TAB [Concomitant]

REACTIONS (8)
  - BLOOD URIC ACID INCREASED [None]
  - CRYSTAL URINE PRESENT [None]
  - GENERAL PHYSICAL HEALTH DETERIORATION [None]
  - PAIN [None]
  - RENAL DISORDER [None]
  - RENAL SCAN ABNORMAL [None]
  - URINARY TRACT OBSTRUCTION [None]
  - WHITE BLOOD CELL COUNT INCREASED [None]
